FAERS Safety Report 8457498-1 (Version None)
Quarter: 2012Q2

REPORT INFORMATION
  Report Type: 
  Country: None (occurrence: None)
  Receive Date: 20120622
  Receipt Date: 20120613
  Transmission Date: 20120825
  Serious: Yes (Death, Life-Threatening)
  Sender: FDA-Public Use
  Company Number: SE-AMGEN-SWECT2012034383

PATIENT
  Age: 72 Year
  Sex: Female

DRUGS (2)
  1. ETANERCEPT [Suspect]
     Indication: RHEUMATOID ARTHRITIS
     Dosage: 50 MG, WEEKLY
     Route: 058
     Dates: start: 20061012, end: 20100213
  2. PREDNISOLONE [Concomitant]
     Dosage: 5 MG, UNK
     Dates: start: 20061012, end: 20100213

REACTIONS (3)
  - PNEUMONIA [None]
  - VOMITING [None]
  - DIARRHOEA [None]
